FAERS Safety Report 6733878-7 (Version None)
Quarter: 2010Q2

REPORT INFORMATION
  Report Type: 
  Country: None (occurrence: None)
  Receive Date: 20100520
  Receipt Date: 20100506
  Transmission Date: 20101027
  Serious: Yes (Other)
  Sender: FDA-Public Use
  Company Number: EG-ROCHE-701616

PATIENT
  Sex: Female
  Weight: 100 kg

DRUGS (7)
  1. TOCILIZUMAB [Suspect]
     Indication: RHEUMATOID ARTHRITIS
     Dosage: UNIT: 8 MG/KG DOSAGE FORM: INTRAVENOUS INFUSION.
     Route: 042
     Dates: start: 20100228
  2. PREDNISOLONE [Concomitant]
     Dates: start: 20100201
  3. FOLIC ACID [Concomitant]
     Dates: start: 20100201
  4. DICLOFENAC SODIUM [Concomitant]
     Dates: start: 20100101, end: 20100506
  5. METHOTREXATE [Concomitant]
     Dates: start: 20080201, end: 20100506
  6. ATORVASTATIN [Concomitant]
     Dates: start: 20100201
  7. CALCIUM PHOSPHATE [Concomitant]
     Dates: start: 20081101

REACTIONS (1)
  - HAEMORRHAGIC DIATHESIS [None]
